FAERS Safety Report 10262898 (Version 1)
Quarter: 2014Q2

REPORT INFORMATION
  Report Type: Report from Study
  Country: US (occurrence: US)
  Receive Date: 20140626
  Receipt Date: 20140626
  Transmission Date: 20141212
  Serious: Yes (Death)
  Sender: FDA-Public Use
  Company Number: US-MYLANLABS-2013S1021754

PATIENT
  Age: 71 Year
  Sex: Male

DRUGS (1)
  1. CLOZAPINE TABLETS [Suspect]

REACTIONS (1)
  - Death [Fatal]
